FAERS Safety Report 14656217 (Version 3)
Quarter: 2018Q3

REPORT INFORMATION
  Report Type: Report from Study
  Country: CN (occurrence: CN)
  Receive Date: 20180319
  Receipt Date: 20180703
  Transmission Date: 20181010
  Serious: Yes (Life-Threatening)
  Sender: FDA-Public Use
  Company Number: CN-AMGEN-CHNCT2018037450

PATIENT
  Age: 23 Year
  Sex: Male
  Weight: 53 kg

DRUGS (33)
  1. DEXAMETHASONE. [Concomitant]
     Active Substance: DEXAMETHASONE
     Dosage: 5 MUG TO 3 MG, UNK
     Dates: start: 20180227, end: 20180329
  2. SODIUM CHLORIDE. [Concomitant]
     Active Substance: SODIUM CHLORIDE
     Dosage: 500 ML TO 500 MG, UNK
     Route: 042
     Dates: start: 20180309, end: 20180329
  3. PANTOPRAZOLE SODIUM. [Concomitant]
     Active Substance: PANTOPRAZOLE SODIUM
     Dosage: 40 MUG, UNK
     Route: 048
     Dates: start: 20180228, end: 20180307
  4. CYTARABINE. [Concomitant]
     Active Substance: CYTARABINE
     Dosage: 50 MG, UNK
     Route: 037
     Dates: start: 20180227, end: 20180227
  5. CEFUROXIME AXETIL. [Concomitant]
     Active Substance: CEFUROXIME AXETIL
     Dosage: 500 MUG, UNK
     Route: 048
     Dates: start: 20180303, end: 20180306
  6. REDUCED GLUTATHIONE SODIUM [Concomitant]
     Active Substance: GLUTATHIONE
     Dosage: 1200 MUG, UNK
     Route: 042
     Dates: start: 20180228, end: 20180330
  7. BLINATUMOMAB [Suspect]
     Active Substance: BLINATUMOMAB
     Indication: B PRECURSOR TYPE ACUTE LEUKAEMIA
     Dosage: 9 MUG, QD
     Route: 065
     Dates: start: 20180308
  8. CETIRIZINE DIHYDROCHLORIDE [Concomitant]
     Active Substance: CETIRIZINE HYDROCHLORIDE
     Dosage: 10 MUG, UNK
     Route: 048
     Dates: start: 20180308, end: 20180330
  9. SUFENTANIL CITRATE. [Concomitant]
     Active Substance: SUFENTANIL CITRATE
     Dosage: 400 TO 2000 MUG, UNK
     Route: 042
     Dates: start: 20180302, end: 20180330
  10. METOCLOPRAMIDE. [Concomitant]
     Active Substance: METOCLOPRAMIDE
     Dosage: 2 MUG, UNK
     Route: 048
     Dates: start: 20180303, end: 20180330
  11. LIDOCAINE. [Concomitant]
     Active Substance: LIDOCAINE
     Dosage: 5 TO 20 ML AND 10 MG, UNK
     Route: 042
     Dates: start: 20180227, end: 20180323
  12. PETHIDINE [Concomitant]
     Active Substance: MEPERIDINE
     Dosage: 100 MG, UNK
     Route: 030
     Dates: start: 20180228, end: 20180309
  13. MORPHINE [Concomitant]
     Active Substance: MORPHINE
     Dosage: 5 MG, UNK
     Route: 048
     Dates: start: 20180301, end: 20180301
  14. METOCLOPRAMIDE DIHYDROCHLORIDE [Concomitant]
     Dosage: 10 MUG, UNK
     Route: 030
     Dates: start: 20180301, end: 20180303
  15. METRONIDAZOLE. [Concomitant]
     Active Substance: METRONIDAZOLE
     Dosage: 400 MG, UNK
     Route: 048
     Dates: start: 20180303, end: 20180330
  16. PREGABALIN. [Concomitant]
     Active Substance: PREGABALIN
     Dosage: 150 MUG, UNK
     Route: 048
     Dates: start: 20180311, end: 20180330
  17. KETOROLAC TROMETHAMINE. [Concomitant]
     Active Substance: KETOROLAC TROMETHAMINE
     Dosage: 30 MG, UNK
     Route: 030
     Dates: start: 20180228, end: 20180228
  18. DEXMEDETOMIDINE HYDROCHLORIDE. [Concomitant]
     Active Substance: DEXMEDETOMIDINE HYDROCHLORIDE
     Dosage: 200 TO 600 MUG, UNK
     Route: 042
     Dates: start: 20180304, end: 20180330
  19. LACTATED RINGERS SOLUTION [Concomitant]
     Active Substance: CALCIUM CHLORIDE\POTASSIUM CHLORIDE\SODIUM CHLORIDE\SODIUM LACTATE
     Dosage: 15 ML, UNK
     Route: 048
     Dates: start: 20180301, end: 20180305
  20. OXYCODONE HYDROCHLORIDE. [Concomitant]
     Active Substance: OXYCODONE HYDROCHLORIDE
     Dosage: 10 TO 20 MG, UNK
     Route: 048
     Dates: start: 20180227, end: 20180309
  21. SODIUM BICARBONATE. [Concomitant]
     Active Substance: SODIUM BICARBONATE
     Dosage: 15 ML, UNK
     Route: 050
     Dates: start: 20180307, end: 20180330
  22. GABAPENTIN. [Concomitant]
     Active Substance: GABAPENTIN
     Dosage: 600 MUG TO 600 MG, UNK
     Route: 048
     Dates: start: 20180309, end: 20180330
  23. METHYLPREDNISOLONE. [Concomitant]
     Active Substance: METHYLPREDNISOLONE
     Dosage: 40 MG, UNK
     Route: 042
     Dates: start: 20180228, end: 20180314
  24. INDOMETACIN [Concomitant]
     Active Substance: INDOMETHACIN
     Dosage: 33 MG, UNK
     Route: 054
     Dates: start: 20180325, end: 20180328
  25. LINEZOLID. [Concomitant]
     Active Substance: LINEZOLID
     Dosage: 600 MUG, UNK
     Route: 048
     Dates: start: 20180309, end: 20180320
  26. CALAMINE W/ZINC OXIDE [Concomitant]
     Dosage: 100 ML, UNK
     Route: 050
     Dates: start: 20180308, end: 20180308
  27. GLYCEROL W/IODINE [Concomitant]
     Dosage: 20 MG, UNK
     Route: 050
     Dates: start: 20180313, end: 20180313
  28. VORICONAZOLE. [Concomitant]
     Active Substance: VORICONAZOLE
     Dosage: 200 MUG, UNK
     Route: 048
     Dates: start: 20180309, end: 20180330
  29. ADRENALINE HYDROCHLORIDE [Concomitant]
     Active Substance: EPINEPHRINE HYDROCHLORIDE
     Dosage: 4 TO 5 MG, UNK
     Route: 050
     Dates: start: 20180319, end: 20180325
  30. MAGNESIUM ISOGLYCYRRHIZINATE [Concomitant]
     Active Substance: MAGNESIUM ISOGLYCYRRHIZINATE
     Dosage: 100 MUG, UNK
     Route: 042
     Dates: start: 20180228, end: 20180313
  31. CHLORPHENAMINE MALEATE [Concomitant]
     Active Substance: CHLORPHENIRAMINE MALEATE
     Dosage: 8 MG, UNK
     Route: 048
     Dates: start: 20180303, end: 20180326
  32. NEOMYCIN. [Concomitant]
     Active Substance: NEOMYCIN
     Dosage: 2 UNK, UNK
     Route: 050
     Dates: start: 20180321, end: 20180324
  33. MORPHINE HYDROCHLORIDE [Concomitant]
     Active Substance: MORPHINE HYDROCHLORIDE
     Dosage: 400 MUG TO 400 MG, UNK
     Dates: start: 20180301, end: 20180330

REACTIONS (1)
  - Platelet count decreased [Unknown]

NARRATIVE: CASE EVENT DATE: 20180314
